FAERS Safety Report 16270144 (Version 1)
Quarter: 2019Q2

REPORT INFORMATION
  Report Type: Spontaneous
  Country: US (occurrence: US)
  Receive Date: 20190503
  Receipt Date: 20190503
  Transmission Date: 20190711
  Serious: Yes (Other)
  Sender: FDA-Public Use
  Company Number: US-JNJFOC-20190439782

PATIENT
  Sex: Female
  Weight: 57.15 kg

DRUGS (1)
  1. ELMIRON [Suspect]
     Active Substance: PENTOSAN POLYSULFATE SODIUM
     Indication: CYSTITIS INTERSTITIAL
     Route: 048

REACTIONS (4)
  - Intervertebral disc degeneration [Unknown]
  - Cystitis interstitial [Unknown]
  - Knee arthroplasty [Unknown]
  - Arthritis [Unknown]
